FAERS Safety Report 21496035 (Version 1)
Quarter: 2022Q4

REPORT INFORMATION
  Report Type: Spontaneous
  Country: IT (occurrence: IT)
  Receive Date: 20221022
  Receipt Date: 20221022
  Transmission Date: 20230113
  Serious: Yes (Hospitalization, Other)
  Sender: FDA-Public Use
  Company Number: IT-MINISAL02-888831

PATIENT
  Age: 29 Year
  Sex: Male

DRUGS (1)
  1. CLOZAPINE [Suspect]
     Active Substance: CLOZAPINE
     Indication: Product used for unknown indication
     Dosage: 100 MILLIGRAM (RIFERITA ASSUNZIONE INVOLONTARIA DI 5-6 COMPRESSE DI CLOZAPINA DA 100 MG)
     Route: 048
     Dates: start: 20221006, end: 20221006

REACTIONS (2)
  - Coma [Not Recovered/Not Resolved]
  - Accidental overdose [Recovering/Resolving]

NARRATIVE: CASE EVENT DATE: 20221006
